FAERS Safety Report 7987042-4 (Version None)
Quarter: 2011Q4

REPORT INFORMATION
  Report Type: 
  Country: None (occurrence: None)
  Receive Date: 20111216
  Receipt Date: 20111012
  Transmission Date: 20120403
  Serious: No
  Sender: FDA-Public Use
  Company Number: US-BRISTOL-MYERS SQUIBB COMPANY-16076663

PATIENT

DRUGS (1)
  1. ABILIFY [Suspect]
     Indication: DEPRESSION
     Dosage: 1DF:30-45MG,STD 2MG AUGMENTATION STRATEGY 1-2MON,INC TO 5MG CONTINUES TO INCD TILL 30-45MG,4-5MONTHS

REACTIONS (1)
  - DRUG INEFFECTIVE [None]
